FAERS Safety Report 8545329-0 (Version None)
Quarter: 2012Q3

REPORT INFORMATION
  Report Type: 
  Country: None (occurrence: None)
  Receive Date: 20120719
  Receipt Date: 20120719
  Transmission Date: 20120928
  Serious: No
  Sender: FDA-Public Use
  Company Number: None

PATIENT
  Sex: Female
  Weight: 94.5 kg

DRUGS (3)
  1. FLUOROURACIL [Suspect]
     Dosage: 11200 MG
  2. CISPLATIN [Suspect]
     Dosage: 105 MG
  3. ERBITUX [Suspect]
     Dosage: 16.7 ML

REACTIONS (4)
  - DRUG HYPERSENSITIVITY [None]
  - DECREASED APPETITE [None]
  - CONDITION AGGRAVATED [None]
  - LYMPHOCYTE COUNT DECREASED [None]
